FAERS Safety Report 17201525 (Version 1)
Quarter: 2019Q4

REPORT INFORMATION
  Report Type: Spontaneous
  Country: US (occurrence: US)
  Receive Date: 20191203
  Receipt Date: 20191203
  Transmission Date: 20200122
  Serious: Yes (Hospitalization)
  Sender: FDA-Public Use
  Company Number: None

PATIENT
  Age: 66 Year
  Sex: Female
  Weight: 79 kg

DRUGS (1)
  1. TOCILIZUMAB INTRAVENOUS SOLUTION [Suspect]
     Active Substance: TOCILIZUMAB
     Route: 042
     Dates: start: 20191104

REACTIONS (4)
  - Hot flush [None]
  - Feeling abnormal [None]
  - Infusion related reaction [None]
  - Insurance issue [None]

NARRATIVE: CASE EVENT DATE: 20191104
